FAERS Safety Report 21045600 (Version 2)
Quarter: 2022Q3

REPORT INFORMATION
  Report Type: Report from Study
  Country: BR (occurrence: BR)
  Receive Date: 20220706
  Receipt Date: 20220804
  Transmission Date: 20221027
  Serious: Yes (Other)
  Sender: FDA-Public Use
  Company Number: BR-ABBVIE-22K-020-4455353-00

PATIENT
  Sex: Male
  Weight: 95 kg

DRUGS (3)
  1. RINVOQ [Suspect]
     Active Substance: UPADACITINIB
     Indication: Rheumatoid arthritis
     Route: 048
     Dates: start: 20220106
  2. RINVOQ [Suspect]
     Active Substance: UPADACITINIB
     Route: 048
  3. LOSARTAN [Concomitant]
     Active Substance: LOSARTAN
     Indication: Hypertension

REACTIONS (7)
  - Basal cell carcinoma [Recovering/Resolving]
  - Keratoacanthoma [Recovering/Resolving]
  - Skin discolouration [Recovered/Resolved]
  - Dermatitis [Recovered/Resolved]
  - Vein disorder [Unknown]
  - Blood cholesterol increased [Unknown]
  - Infection [Recovered/Resolved]

NARRATIVE: CASE EVENT DATE: 20220101
